FAERS Safety Report 5168908-X (Version None)
Quarter: 2006Q4

REPORT INFORMATION
  Report Type: 
  Country: None (occurrence: None)
  Receive Date: 20061211
  Receipt Date: 20061127
  Transmission Date: 20070319
  Serious: Yes (Other)
  Sender: FDA-Public Use
  Company Number: PHEH2006US14629

PATIENT
  Age: 24 Year
  Sex: Female

DRUGS (3)
  1. ELIDEL [Suspect]
     Dosage: UNK, UNK
     Route: 061
     Dates: start: 20051025, end: 20061124
  2. PROCARDIA [Concomitant]
     Indication: PROPHYLAXIS
  3. ANTIBIOTICS [Concomitant]
     Indication: PHARYNGITIS

REACTIONS (5)
  - AMNIOTIC FLUID VOLUME DECREASED [None]
  - DRUG EXPOSURE DURING PREGNANCY [None]
  - FOETAL HEART RATE ABNORMAL [None]
  - PLACENTAL DISORDER [None]
  - STILLBIRTH [None]
